FAERS Safety Report 13262047 (Version 1)
Quarter: 2017Q1

REPORT INFORMATION
  Report Type: Spontaneous
  Country: US (occurrence: US)
  Receive Date: 20170222
  Receipt Date: 20170222
  Transmission Date: 20170428
  Serious: No
  Sender: FDA-Public Use
  Company Number: US-LUNDBECK-DKLU2023690

PATIENT
  Age: 74 Year
  Sex: Male

DRUGS (3)
  1. NORTHERA [Suspect]
     Active Substance: DROXIDOPA
     Indication: PRODUCT USED FOR UNKNOWN INDICATION
     Dosage: SCHEDULE C (TITRATING)
     Route: 065
     Dates: start: 20161129
  2. NORTHERA [Suspect]
     Active Substance: DROXIDOPA
     Route: 065
     Dates: start: 20161202
  3. NORTHERA [Suspect]
     Active Substance: DROXIDOPA
     Route: 065
     Dates: start: 20161201

REACTIONS (3)
  - Dizziness [Recovering/Resolving]
  - Influenza [Recovering/Resolving]
  - Blood pressure decreased [Recovering/Resolving]

NARRATIVE: CASE EVENT DATE: 20161129
